FAERS Safety Report 22362004 (Version 1)
Quarter: 2023Q2

REPORT INFORMATION
  Report Type: Spontaneous
  Country: US (occurrence: None)
  Receive Date: 20230524
  Receipt Date: 20230524
  Transmission Date: 20230722
  Serious: Yes (Hospitalization)
  Sender: FDA-Public Use
  Company Number: None

PATIENT
  Age: 66 Year
  Sex: Female
  Weight: 102.06 kg

DRUGS (26)
  1. IBRANCE [Suspect]
     Active Substance: PALBOCICLIB
     Indication: Breast cancer female
     Dosage: OTHER FREQUENCY : 21D ON 7D OFF;?
     Route: 048
     Dates: start: 20220621, end: 20230521
  2. ANASTROZOLE [Concomitant]
     Active Substance: ANASTROZOLE
  3. ATORVASTATIN [Concomitant]
     Active Substance: ATORVASTATIN
  4. AZELASTINE HYDROCHLORIDE\FLUTICASONE PROPIONATE [Concomitant]
     Active Substance: AZELASTINE HYDROCHLORIDE\FLUTICASONE PROPIONATE
  5. BROMELAINS [Concomitant]
     Active Substance: BROMELAINS
  6. CALCIUM CARBONATE + VIT D [Concomitant]
  7. CLOPIDOGREL [Concomitant]
  8. COLLAGEN [Concomitant]
     Active Substance: COLLAGEN
  9. CYCLOBENZAPRINE [Concomitant]
     Active Substance: CYCLOBENZAPRINE
  10. FLAXSEED [Concomitant]
     Active Substance: FLAX SEED
  11. GABAPENTIN [Concomitant]
     Active Substance: GABAPENTIN
  12. GINKGO [Concomitant]
     Active Substance: GINKGO
  13. CHONDROITIN SULFATE (BOVINE)\GLUCOSAMINE SULFATE [Concomitant]
     Active Substance: CHONDROITIN SULFATE (BOVINE)\GLUCOSAMINE SULFATE
  14. HERBALS\VITIS VINIFERA SEED [Concomitant]
     Active Substance: HERBALS\VITIS VINIFERA SEED
  15. IODINE [Concomitant]
     Active Substance: IODINE
  16. VITAMIN E [Concomitant]
     Active Substance: .ALPHA.-TOCOPHEROL
  17. LACTOBACILLUS ACIDOPHILUS [Concomitant]
     Active Substance: LACTOBACILLUS ACIDOPHILUS
  18. MAGOX [Concomitant]
  19. VITAMINS [Concomitant]
     Active Substance: VITAMINS
  20. OLEA EUROPAEA LEAF [Concomitant]
     Active Substance: OLEA EUROPAEA LEAF
  21. TUMERIC COMPLEX [Concomitant]
  22. MSM 1000 [Concomitant]
  23. ZINC [Concomitant]
     Active Substance: ZINC
  24. VITAMIN C [Concomitant]
     Active Substance: ASCORBIC ACID
  25. VITAMIN D3 [Concomitant]
     Active Substance: CHOLECALCIFEROL
  26. VIT K2 [Concomitant]

REACTIONS (3)
  - Red blood cell count decreased [None]
  - Loss of consciousness [None]
  - Therapy interrupted [None]
